FAERS Safety Report 7376870-4 (Version None)
Quarter: 2011Q1

REPORT INFORMATION
  Report Type: 
  Country: None (occurrence: None)
  Receive Date: 20110326
  Receipt Date: 20110322
  Transmission Date: 20110831
  Serious: Yes (Hospitalization)
  Sender: FDA-Public Use
  Company Number: JP-ABBOTT-11P-087-0713639-00

PATIENT
  Sex: Male
  Weight: 75 kg

DRUGS (6)
  1. HUMIRA [Suspect]
     Route: 058
     Dates: start: 20100927, end: 20101224
  2. ZINC OXIDE [Concomitant]
     Indication: PSORIASIS
     Dosage: 500 G/MONTH
     Route: 061
     Dates: start: 20101220, end: 20110112
  3. DIFLUPREDNATE [Concomitant]
     Indication: PSORIASIS
     Dosage: 50 G/MONTH
     Route: 061
     Dates: start: 20101125
  4. CLOBETASOL PROPIONATE [Concomitant]
     Indication: PSORIASIS
     Dosage: 50 G/MONTH
     Route: 061
     Dates: start: 20101125
  5. HUMIRA [Suspect]
     Indication: PSORIASIS
     Route: 058
     Dates: start: 20100913, end: 20100913
  6. WHITE PETROLATUM [Concomitant]
     Indication: PSORIASIS
     Dosage: 500 G/MONTH
     Route: 061
     Dates: start: 20101125

REACTIONS (7)
  - OEDEMA [None]
  - PYREXIA [None]
  - RASH [None]
  - SKIN EXFOLIATION [None]
  - SKIN HYPERTROPHY [None]
  - WOUND SECRETION [None]
  - SKIN FISSURES [None]
